FAERS Safety Report 5762865-0 (Version None)
Quarter: 2008Q2

REPORT INFORMATION
  Report Type: 
  Country: None (occurrence: None)
  Receive Date: 20080609
  Receipt Date: 20080529
  Transmission Date: 20081010
  Serious: Yes (Hospitalization)
  Sender: FDA-Public Use
  Company Number: DE-JNJFOC-20080505754

PATIENT
  Age: 45 Year
  Sex: Male

DRUGS (1)
  1. TAVANIC [Suspect]
     Indication: BRONCHITIS
     Route: 048

REACTIONS (5)
  - ASTHENIA [None]
  - BLOOD CREATINE PHOSPHOKINASE INCREASED [None]
  - BLOOD LACTATE DEHYDROGENASE INCREASED [None]
  - MYALGIA [None]
  - MYOCARDITIS [None]
